FAERS Safety Report 13544583 (Version 1)
Quarter: 2017Q2

REPORT INFORMATION
  Report Type: Spontaneous
  Country: US (occurrence: US)
  Receive Date: 20170512
  Receipt Date: 20170512
  Transmission Date: 20170830
  Serious: Yes (Hospitalization)
  Sender: FDA-Public Use
  Company Number: None

PATIENT
  Age: 55 Year
  Sex: Female

DRUGS (1)
  1. IBRANCE [Suspect]
     Active Substance: PALBOCICLIB
     Indication: BREAST CANCER
     Dosage: 100  MG QD X 21 DAYS PO
     Route: 048
     Dates: start: 20160428

REACTIONS (2)
  - Drug dose omission [None]
  - Loss of consciousness [None]

NARRATIVE: CASE EVENT DATE: 20170412
